FAERS Safety Report 10629013 (Version 1)
Quarter: 2014Q4

REPORT INFORMATION
  Report Type: Spontaneous
  Country: US (occurrence: US)
  Receive Date: 20141205
  Receipt Date: 20141205
  Transmission Date: 20150529
  Serious: No
  Sender: FDA-Public Use
  Company Number: US-BRISTOL-MYERS SQUIBB COMPANY-21243100

PATIENT
  Age: 64 Year
  Sex: Female

DRUGS (1)
  1. KENALOG [Suspect]
     Active Substance: TRIAMCINOLONE ACETONIDE
     Indication: URTICARIA
     Route: 030
     Dates: start: 201405, end: 201405

REACTIONS (4)
  - Insomnia [Unknown]
  - Hyperphagia [Unknown]
  - Blood glucose decreased [Unknown]
  - Aggression [Unknown]
